FAERS Safety Report 4504071-3 (Version None)
Quarter: 2004Q4

REPORT INFORMATION
  Report Type: 
  Country: None (occurrence: None)
  Receive Date: 20041118
  Receipt Date: 20041109
  Transmission Date: 20050328
  Serious: Yes (Hospitalization, Other)
  Sender: FDA-Public Use
  Company Number: US-JNJFOC-20041102462

PATIENT
  Sex: Female
  Weight: 78.02 kg

DRUGS (9)
  1. REMICADE [Suspect]
     Route: 042
  2. REMICADE [Suspect]
     Route: 042
  3. FOLIC ACID [Concomitant]
  4. METHOTREXATE [Concomitant]
  5. PREDNISONE [Concomitant]
  6. ZOCOR [Concomitant]
  7. FOSAMAX [Concomitant]
  8. LOTREL [Concomitant]
  9. LOTREL [Concomitant]
     Indication: HYPERTENSION

REACTIONS (5)
  - ABSCESS [None]
  - HYPERTENSION [None]
  - INGUINAL HERNIA [None]
  - INTESTINAL OBSTRUCTION [None]
  - SYSTEMIC LUPUS ERYTHEMATOSUS [None]
